FAERS Safety Report 13362401 (Version 1)
Quarter: 2017Q1

REPORT INFORMATION
  Report Type: Report from Study
  Country: IN (occurrence: IN)
  Receive Date: 20170323
  Receipt Date: 20170323
  Transmission Date: 20170429
  Serious: Yes (Death, Other)
  Sender: FDA-Public Use
  Company Number: PHHY2015IN015712

PATIENT
  Sex: Female

DRUGS (1)
  1. GLIVEC [Suspect]
     Active Substance: IMATINIB MESYLATE
     Indication: CHRONIC MYELOID LEUKAEMIA
     Dosage: 400 MG, UNK
     Route: 048

REACTIONS (6)
  - Death [Fatal]
  - Malaise [Unknown]
  - Haemoglobin decreased [Unknown]
  - Furuncle [Not Recovered/Not Resolved]
  - Drug resistance [Unknown]
  - Wound [Unknown]
